FAERS Safety Report 5620790-X (Version None)
Quarter: 2008Q1

REPORT INFORMATION
  Report Type: 
  Country: None (occurrence: None)
  Receive Date: 20080208
  Receipt Date: 20080129
  Transmission Date: 20080703
  Serious: Yes (Other)
  Sender: FDA-Public Use
  Company Number: US-PFIZER INC-2007089276

PATIENT
  Sex: Female

DRUGS (8)
  1. LIPITOR [Suspect]
     Indication: BLOOD CHOLESTEROL INCREASED
     Route: 048
  2. LIPITOR [Suspect]
     Indication: HYPERCHOLESTEROLAEMIA
  3. ATENOLOL [Concomitant]
     Route: 048
  4. VALSARTAN [Concomitant]
     Route: 048
  5. GLYBURIDE AND METFORMIN HCL [Concomitant]
     Dosage: TEXT:2.5/500MG
     Route: 048
  6. DIOVAN HCT [Concomitant]
     Dosage: TEXT:320/25MG
     Route: 048
  7. HYDROCHLOROTHIAZIDE [Concomitant]
     Route: 048
  8. LOTENSIN HCT [Concomitant]
     Dosage: TEXT:10/12.5MG
     Route: 048

REACTIONS (28)
  - ACTINIC KERATOSIS [None]
  - ARTHRALGIA [None]
  - ARTHROPATHY [None]
  - ASTHENIA [None]
  - BACK PAIN [None]
  - BLOOD CREATINE PHOSPHOKINASE INCREASED [None]
  - BLOOD TEST ABNORMAL [None]
  - BRONCHITIS [None]
  - COUGH [None]
  - DYSPNOEA EXERTIONAL [None]
  - FALL [None]
  - FATIGUE [None]
  - GAIT DISTURBANCE [None]
  - LIVER FUNCTION TEST ABNORMAL [None]
  - MUSCLE NECROSIS [None]
  - MUSCLE SPASMS [None]
  - MUSCULAR WEAKNESS [None]
  - MYALGIA [None]
  - MYOPATHY [None]
  - MYOPATHY TOXIC [None]
  - MYOSITIS [None]
  - NOCTURIA [None]
  - PERIODIC LIMB MOVEMENT DISORDER [None]
  - POLYMYOSITIS [None]
  - RHINITIS ALLERGIC [None]
  - SOFT TISSUE DISORDER [None]
  - TRANSAMINASES INCREASED [None]
  - WEIGHT DECREASED [None]
